FAERS Safety Report 7685773-7 (Version None)
Quarter: 2011Q3

REPORT INFORMATION
  Report Type: 
  Country: None (occurrence: None)
  Receive Date: 20110815
  Receipt Date: 20110815
  Transmission Date: 20111222
  Serious: Yes (Hospitalization)
  Sender: FDA-Public Use
  Company Number: None

PATIENT
  Sex: Male
  Weight: 68.2 kg

DRUGS (1)
  1. LISINOPRIL [Suspect]
     Indication: HYPERTENSION
     Dosage: 10MG
     Route: 048

REACTIONS (9)
  - LIP SWELLING [None]
  - WHEEZING [None]
  - PHARYNGEAL OEDEMA [None]
  - SWELLING FACE [None]
  - DYSPHAGIA [None]
  - DYSPNOEA [None]
  - ANGIOEDEMA [None]
  - RESPIRATORY FAILURE [None]
  - APHASIA [None]
